FAERS Safety Report 8678694 (Version 2)
Quarter: 2013Q2

REPORT INFORMATION
  Report Type: Spontaneous
  Country: US (occurrence: None)
  Receive Date: 20120406
  Receipt Date: 20120406
  Transmission Date: 20140414
  Serious: Yes (Hospitalization)
  Sender: FDA-Public Use
  Company Number: US-CYPR-2012-000002

PATIENT
  Age: 66 Year
  Sex: Male
  Weight: 112 kg

DRUGS (16)
  1. CLOPIDOGREL [Suspect]
     Indication: ANTIPLATELET THERAPY
     Dosage: (75 MG ORAL)
     Route: 048
     Dates: start: 20111013
  2. ASPIRIN [Suspect]
     Indication: CORONARY ARTERY DISEASE
     Dosage: 325 MG ORAL)
     Route: 048
     Dates: start: 1995
  3. NOVOLOG [Concomitant]
  4. LEVEMIR [Concomitant]
  5. POTASSIUM [Concomitant]
  6. ACTOS [Concomitant]
  7. LANOXIN [Concomitant]
  8. SIMVASTATIN [Concomitant]
  9. LOPID [Concomitant]
  10. AMARYL [Concomitant]
  11. BYSTOLIC [Concomitant]
  12. IMDUR [Concomitant]
  13. METFORMIN? [Concomitant]
  14. FUROSEMIDE? [Concomitant]
  15. OMEPRAZOLE [Concomitant]
  16. CYPHER STENT [Concomitant]

REACTIONS (1)
  - CHRONIC OBSTRUCTIVE PULMONARY DISEASE [None]
